FAERS Safety Report 10177231 (Version 1)
Quarter: 2014Q2

REPORT INFORMATION
  Report Type: Spontaneous
  Country: US (occurrence: US)
  Receive Date: 20140516
  Receipt Date: 20140516
  Transmission Date: 20141212
  Serious: No
  Sender: FDA-Public Use
  Company Number: US-BAYER-2014-072737

PATIENT
  Age: 76 Year
  Sex: Female

DRUGS (2)
  1. ALEVE CAPLET [Suspect]
     Indication: BACK PAIN
     Route: 048
  2. MIDOL EXTENDED RELIEF CAPLET [Suspect]
     Indication: DYSMENORRHOEA
     Route: 048

REACTIONS (3)
  - Feeling abnormal [None]
  - Drug intolerance [None]
  - Drug ineffective [None]
